FAERS Safety Report 9760615 (Version 1)
Quarter: 2013Q4

REPORT INFORMATION
  Report Type: Spontaneous
  Country: US (occurrence: US)
  Receive Date: 20131216
  Receipt Date: 20131216
  Transmission Date: 20140711
  Serious: No
  Sender: FDA-Public Use
  Company Number: US-BIOGENIDEC-2013BI099358

PATIENT
  Sex: Female

DRUGS (9)
  1. TECFIDERA [Suspect]
     Indication: MULTIPLE SCLEROSIS
     Route: 048
     Dates: start: 201309
  2. TYLENOL [Concomitant]
  3. FOLIC ACID [Concomitant]
  4. CALCIUM + VITAMIN D [Concomitant]
  5. ALEVE [Concomitant]
  6. CVS VITAMIN D [Concomitant]
  7. CVS VITAMIN E [Concomitant]
  8. CVS VITAMIN B-100 COMPLX [Concomitant]
  9. LEVOXYL [Concomitant]

REACTIONS (1)
  - Salivary hypersecretion [Not Recovered/Not Resolved]
